FAERS Safety Report 20418926 (Version 1)
Quarter: 2022Q1

REPORT INFORMATION
  Report Type: Report from Study
  Country: AT (occurrence: AT)
  Receive Date: 20220202
  Receipt Date: 20220202
  Transmission Date: 20220424
  Serious: Yes (Death)
  Sender: FDA-Public Use
  Company Number: AT-ABBVIE-22K-009-4262087-00

PATIENT
  Age: 74 Year
  Sex: Male

DRUGS (2)
  1. CARBIDOPA\LEVODOPA [Suspect]
     Active Substance: CARBIDOPA\LEVODOPA
     Indication: Parkinson^s disease
     Dosage: 16 THERAPY: MD: 5ML, CR DAYTIME: 1.0ML/H, CR NIGHTTIME: 0.0ML/H, ED: 0,5.ML
     Route: 050
     Dates: start: 20210411
  2. CARBIDOPA\LEVODOPA [Suspect]
     Active Substance: CARBIDOPA\LEVODOPA

REACTIONS (1)
  - Death [Fatal]
